FAERS Safety Report 15439925 (Version 1)
Quarter: 2018Q3

REPORT INFORMATION
  Report Type: Spontaneous
  Country: US (occurrence: US)
  Receive Date: 20180925
  Receipt Date: 20180925
  Transmission Date: 20181010
  Serious: Yes (Hospitalization)
  Sender: FDA-Public Use
  Company Number: None

PATIENT
  Sex: Female

DRUGS (5)
  1. NEULASTA [Suspect]
     Active Substance: PEGFILGRASTIM
     Indication: BONE CANCER
     Route: 058
     Dates: start: 20180707
  2. OXYCODONE [Concomitant]
     Active Substance: OXYCODONE
  3. SMZ/TMP DS [Concomitant]
     Active Substance: SULFAMETHOXAZOLE\TRIMETHOPRIM
  4. VITAMIN D [Concomitant]
     Active Substance: CHOLECALCIFEROL
  5. VIT B COMPLEX [Concomitant]

REACTIONS (2)
  - Metastases to lung [None]
  - Bone cancer [None]
